FAERS Safety Report 20769795 (Version 8)
Quarter: 2023Q2

REPORT INFORMATION
  Report Type: Spontaneous
  Country: US (occurrence: US)
  Receive Date: 20220429
  Receipt Date: 20230512
  Transmission Date: 20230721
  Serious: No
  Sender: FDA-Public Use
  Company Number: US-PFIZER INC-202200533069

PATIENT
  Age: 75 Year
  Sex: Female

DRUGS (1)
  1. IBRANCE [Suspect]
     Active Substance: PALBOCICLIB
     Indication: Breast cancer female
     Dosage: 125 MG, CYCLIC
     Dates: start: 202112

REACTIONS (14)
  - Radiation injury [Unknown]
  - Alopecia [Unknown]
  - Malaise [Unknown]
  - Vomiting [Unknown]
  - Arthritis [Unknown]
  - Neoplasm progression [Unknown]
  - Fall [Unknown]
  - Poor quality sleep [Unknown]
  - Nasopharyngitis [Unknown]
  - Diarrhoea [Unknown]
  - Hypoaesthesia [Unknown]
  - Sensitive skin [Unknown]
  - Dyspnoea [Unknown]
  - Therapeutic response unexpected [Unknown]
